FAERS Safety Report 4448822-5 (Version None)
Quarter: 2004Q3

REPORT INFORMATION
  Report Type: 
  Country: None (occurrence: None)
  Receive Date: 20040909
  Receipt Date: 20040825
  Transmission Date: 20050211
  Serious: No
  Sender: FDA-Public Use
  Company Number: FABR-10749

PATIENT
  Age: 16 Year
  Sex: Male
  Weight: 61 kg

DRUGS (2)
  1. FABRAZYME [Suspect]
     Indication: FABRY'S DISEASE
     Dosage: 1 MG/KG Q2WKS IV
     Route: 042
     Dates: start: 20040210
  2. TYLENOL [Concomitant]

REACTIONS (5)
  - ANAPHYLACTIC SHOCK [None]
  - BLOOD ALKALINE PHOSPHATASE INCREASED [None]
  - BLOOD BILIRUBIN INCREASED [None]
  - INFUSION RELATED REACTION [None]
  - VENTRICULAR HYPERTROPHY [None]
